FAERS Safety Report 20410335 (Version 2)
Quarter: 2022Q1

REPORT INFORMATION
  Report Type: Spontaneous
  Country: US (occurrence: US)
  Receive Date: 20220201
  Receipt Date: 20220213
  Transmission Date: 20220423
  Serious: No
  Sender: FDA-Public Use
  Company Number: US-AMGEN-USASP2022015474

PATIENT
  Age: 64 Year
  Sex: Female
  Weight: 86.621 kg

DRUGS (2)
  1. OTEZLA [Suspect]
     Active Substance: APREMILAST
     Indication: Arthropathy
     Dosage: 10,20,30 MG FOR FIRST FIVE DAYS OF OTEZLA THERAPY
     Route: 048
     Dates: start: 20211221
  2. OTEZLA [Suspect]
     Active Substance: APREMILAST
     Indication: Off label use
     Dosage: 30 MILLIGRAM, BID
     Route: 048
     Dates: start: 20211227

REACTIONS (2)
  - Diarrhoea [Recovered/Resolved]
  - Off label use [Not Recovered/Not Resolved]

NARRATIVE: CASE EVENT DATE: 20211221
